FAERS Safety Report 5536626-1 (Version None)
Quarter: 2007Q4

REPORT INFORMATION
  Report Type: 
  Country: None (occurrence: None)
  Receive Date: 20071206
  Receipt Date: 20070816
  Transmission Date: 20080405
  Serious: Yes (Hospitalization)
  Sender: FDA-Public Use
  Company Number: US-AMGEN-STX239231

PATIENT
  Sex: Female

DRUGS (1)
  1. ENBREL [Suspect]
     Indication: RHEUMATOID ARTHRITIS
     Route: 058
     Dates: start: 20060301

REACTIONS (4)
  - BLOOD OESTROGEN ABNORMAL [None]
  - DYSPNOEA [None]
  - OESOPHAGEAL CANDIDIASIS [None]
  - RHEUMATOID ARTHRITIS [None]
